FAERS Safety Report 17397508 (Version 1)
Quarter: 2020Q1

REPORT INFORMATION
  Report Type: Report from Study
  Country: US (occurrence: US)
  Receive Date: 20200210
  Receipt Date: 20200210
  Transmission Date: 20200409
  Serious: Yes (Other)
  Sender: FDA-Public Use
  Company Number: US-TEVA-2020-US-1182829

PATIENT
  Age: 50 Year
  Sex: Female

DRUGS (4)
  1. ASENAPINE. [Suspect]
     Active Substance: ASENAPINE
     Indication: MENTAL DISORDER
     Route: 060
  2. LURASIDONE [Suspect]
     Active Substance: LURASIDONE
     Indication: MENTAL DISORDER
     Route: 065
  3. QUETIAPINE. [Suspect]
     Active Substance: QUETIAPINE
     Indication: MENTAL DISORDER
     Route: 065
  4. CLOZAPINE. [Suspect]
     Active Substance: CLOZAPINE
     Indication: MENTAL DISORDER
     Route: 065

REACTIONS (1)
  - Embolism venous [Unknown]
